FAERS Safety Report 4379302-3 (Version None)
Quarter: 2004Q2

REPORT INFORMATION
  Report Type: 
  Country: None (occurrence: None)
  Receive Date: 20040610
  Receipt Date: 20040525
  Transmission Date: 20050107
  Serious: Yes (Other)
  Sender: FDA-Public Use
  Company Number: 701731

PATIENT
  Age: 54 Year
  Sex: Female
  Weight: 72.5755 kg

DRUGS (2)
  1. AMEVIVE [Suspect]
     Indication: ECZEMA
     Dosage: 15 MG QW IM
     Route: 030
     Dates: start: 20031103, end: 20040205
  2. ATIVAN [Concomitant]

REACTIONS (4)
  - ARTERIAL STENOSIS [None]
  - CEREBROVASCULAR ACCIDENT [None]
  - NERVOUS SYSTEM DISORDER [None]
  - TRANSIENT ISCHAEMIC ATTACK [None]
